FAERS Safety Report 16829245 (Version 1)
Quarter: 2019Q3

REPORT INFORMATION
  Report Type: Spontaneous
  Country: US (occurrence: US)
  Receive Date: 20190919
  Receipt Date: 20190919
  Transmission Date: 20191005
  Serious: No
  Sender: FDA-Public Use
  Company Number: US-AMERICAN REGENT INC-20171655

PATIENT
  Age: 55 Year
  Sex: Female

DRUGS (3)
  1. INJECTAFER [Suspect]
     Active Substance: FERRIC CARBOXYMALTOSE
     Dosage: UNKNOWN 1 DAYS
     Route: 065
     Dates: start: 20170912, end: 20170912
  2. BENADRYL [Suspect]
     Active Substance: DIPHENHYDRAMINE HYDROCHLORIDE
     Dosage: UNKNOWN
     Dates: start: 20170920
  3. INJECTAFER [Suspect]
     Active Substance: FERRIC CARBOXYMALTOSE
     Dosage: UNKNOWN
     Route: 065
     Dates: start: 20170920, end: 20170920

REACTIONS (4)
  - Nausea [Unknown]
  - Palpitations [Unknown]
  - Diarrhoea [Unknown]
  - Urticaria [Unknown]

NARRATIVE: CASE EVENT DATE: 20170920
